FAERS Safety Report 4773091-6 (Version None)
Quarter: 2005Q3

REPORT INFORMATION
  Report Type: 
  Country: None (occurrence: None)
  Receive Date: 20050916
  Receipt Date: 20050908
  Transmission Date: 20060218
  Serious: Yes (Death)
  Sender: FDA-Public Use
  Company Number: R301319-PRT05T-J

PATIENT
  Age: 82 Year
  Sex: Female
  Weight: 46 kg

DRUGS (6)
  1. RABEPRAZOLE SODIUM [Suspect]
     Indication: REFLUX OESOPHAGITIS
     Dosage: 10 MG, 1 IN 1 D, ORAL
     Route: 048
     Dates: start: 20040930, end: 20050401
  2. LOSARTAN POTASSIUM [Concomitant]
  3. ASPIRIN [Concomitant]
  4. LUPRAC (TORASEMIDE) [Concomitant]
  5. SENNAL (SENNOSIDE A) [Concomitant]
  6. COVERSYL (PERINDOPRIL) [Concomitant]

REACTIONS (1)
  - DEATH [None]
